FAERS Safety Report 18099784 (Version 1)
Quarter: 2020Q3

REPORT INFORMATION
  Report Type: Spontaneous
  Country: FR (occurrence: FR)
  Receive Date: 20200731
  Receipt Date: 20200731
  Transmission Date: 20201103
  Serious: Yes (Death, Hospitalization)
  Sender: FDA-Public Use
  Company Number: FR-CADILA HEALTHCARE LIMITED-FR-ZYDUS-024173

PATIENT

DRUGS (20)
  1. SCOPODERM [Suspect]
     Active Substance: SCOPOLAMINE
     Indication: RALES
     Dosage: 1 DOSAGE FORM,(INTERVAL :72 HOURS)
     Route: 062
     Dates: start: 20170519
  2. IMOVANE [Suspect]
     Active Substance: ZOPICLONE
     Indication: INSOMNIA
     Dosage: 7.5 MILLIGRAM,(INTERVAL :1 DAYS)
     Route: 048
     Dates: start: 20170416
  3. AMOXICILLIN. [Suspect]
     Active Substance: AMOXICILLIN
     Indication: PRODUCT USED FOR UNKNOWN INDICATION
     Dosage: 3 GRAM,(INTERVAL :1 DAYS)
     Route: 048
     Dates: start: 20170526, end: 20170602
  4. LOPERAMIDE [Suspect]
     Active Substance: LOPERAMIDE
     Indication: DIARRHOEA
     Dosage: 6 MILLIGRAM,IF NECESSARY,(INTERVAL :1 DAYS)
     Route: 048
  5. MIANSERINE [Suspect]
     Active Substance: MIANSERIN HYDROCHLORIDE
     Indication: DEPRESSION
     Dosage: 30 MILLIGRAM,(INTERVAL :1 DAYS)
     Route: 048
     Dates: start: 20170407
  6. MORPHINE [Suspect]
     Active Substance: MORPHINE
     Indication: PAIN
     Dosage: 3 MG BOLUS EVERY 4 HOURS
     Route: 042
     Dates: start: 20170526
  7. SERESTA [Suspect]
     Active Substance: OXAZEPAM
     Indication: ANXIETY
     Dosage: 20 MG X 3 DAILY + 50 MG EVENING
     Route: 048
     Dates: start: 20170420
  8. VANCOMYCINE [Suspect]
     Active Substance: VANCOMYCIN
     Indication: PRODUCT USED FOR UNKNOWN INDICATION
     Dosage: 1.5 GRAM,(INTERVAL :1 DAYS)
     Route: 042
     Dates: start: 20170503
  9. HALDOL [Suspect]
     Active Substance: HALOPERIDOL
     Indication: ANXIETY
     Dosage: 3 MILLIGRAM,(INTERVAL :1 DAYS)
     Route: 048
     Dates: start: 20170416
  10. BRICANYL [Suspect]
     Active Substance: TERBUTALINE SULFATE
     Indication: PRODUCT USED FOR UNKNOWN INDICATION
     Dosage: UNSPECIFIED
     Route: 055
     Dates: start: 20170505
  11. SERTRALINE [Suspect]
     Active Substance: SERTRALINE HYDROCHLORIDE
     Indication: DEPRESSION
     Dosage: 50 MILLIGRAM,(INTERVAL :1 DAYS)
     Route: 048
     Dates: start: 20170413
  12. NICOPATCH [Suspect]
     Active Substance: NICOTINE
     Indication: EX-TOBACCO USER
     Dosage: 14 MILLIGRAM,(INTERVAL :24 HOURS)
     Route: 062
     Dates: start: 20170410
  13. SKENAN [Suspect]
     Active Substance: MORPHINE SULFATE
     Indication: PAIN
     Route: 048
     Dates: start: 20170526
  14. PARACETAMOL [Suspect]
     Active Substance: ACETAMINOPHEN
     Indication: PAIN
     Dosage: 1 GRAM
     Route: 048
     Dates: start: 20170509
  15. RACECADOTRIL [Suspect]
     Active Substance: RACECADOTRIL
     Indication: DIARRHOEA
     Dosage: 200 MILLIGRAM,(INTERVAL :6 HOURS)
     Route: 048
     Dates: start: 20170509
  16. TAZOCILLINE [Suspect]
     Active Substance: PIPERACILLIN SODIUM\TAZOBACTAM SODIUM
     Indication: LUNG DISORDER
     Dosage: UNSPECIFIED
     Route: 042
     Dates: start: 20170526, end: 20170526
  17. CALCIUM FOLINATE [Suspect]
     Active Substance: LEUCOVORIN CALCIUM
     Indication: PRODUCT USED FOR UNKNOWN INDICATION
     Dosage: 100 MILLIGRAM,(INTERVAL :1 DAYS)
     Route: 042
     Dates: start: 201704
  18. VITAMIN K [Suspect]
     Active Substance: PHYTONADIONE
     Indication: PRODUCT USED FOR UNKNOWN INDICATION
     Dosage: 20 MILLIGRAM,(INTERVAL :1 WEEKS)
     Route: 042
     Dates: start: 20170428
  19. INNOHEP [Suspect]
     Active Substance: TINZAPARIN SODIUM
     Indication: DEEP VEIN THROMBOSIS
     Dosage: 18000 INTERNATIONAL UNIT,(INTERVAL :1 DAYS)
     Route: 058
     Dates: start: 20170426
  20. INEXIUM [Suspect]
     Active Substance: ESOMEPRAZOLE
     Indication: STRESS ULCER
     Dosage: 40 MILLIGRAM,(INTERVAL :1 DAYS)
     Route: 048
     Dates: start: 20170523

REACTIONS (5)
  - Gamma-glutamyltransferase increased [Not Recovered/Not Resolved]
  - Blood alkaline phosphatase increased [Not Recovered/Not Resolved]
  - Cholestasis [Not Recovered/Not Resolved]
  - Transaminases increased [Not Recovered/Not Resolved]
  - Hepatocellular injury [Not Recovered/Not Resolved]

NARRATIVE: CASE EVENT DATE: 20170526
